FAERS Safety Report 5068310-5 (Version None)
Quarter: 2006Q3

REPORT INFORMATION
  Report Type: 
  Country: None (occurrence: None)
  Receive Date: 20060802
  Receipt Date: 20050727
  Transmission Date: 20061208
  Serious: No
  Sender: FDA-Public Use
  Company Number: US-BRISTOL-MYERS SQUIBB COMPANY-13053608

PATIENT
  Age: 33 Year
  Sex: Female
  Weight: 93 kg

DRUGS (3)
  1. COUMADIN [Suspect]
     Indication: COAGULOPATHY
     Dosage: 4 MG D/EVENINGS FOR 3 DAYS, INCREASED TO 6MG/DAY FOR 4 DAYS, 10 MG/D FOR 1 WK, 8MG/D FOR 1 WK
     Route: 048
     Dates: start: 20050701, end: 20050726
  2. COUMADIN [Suspect]
     Indication: COAGULOPATHY
     Dosage: 4 MG D/EVENINGS FOR 3 DAYS, INCREASED TO 6MG/DAY FOR 4 DAYS, 10 MG/D FOR 1 WK, 8MG/D FOR 1 WK
     Route: 048
     Dates: end: 20050727
  3. DIOVAN [Concomitant]

REACTIONS (4)
  - ANOREXIA [None]
  - ASTHENIA [None]
  - DYSGEUSIA [None]
  - WEIGHT DECREASED [None]
